FAERS Safety Report 16134314 (Version 1)
Quarter: 2019Q1

REPORT INFORMATION
  Report Type: Report from Study
  Country: US (occurrence: US)
  Receive Date: 20190329
  Receipt Date: 20190329
  Transmission Date: 20190418
  Serious: Yes (Life-Threatening)
  Sender: FDA-Public Use
  Company Number: US-ASTRAZENECA-2019SE48006

PATIENT
  Sex: Female

DRUGS (2)
  1. LOPINAVIR/RITONAVIR [Interacting]
     Active Substance: LOPINAVIR\RITONAVIR
     Route: 065
  2. QUETIAPINE XR [Suspect]
     Active Substance: QUETIAPINE
     Route: 048

REACTIONS (2)
  - Drug interaction [Unknown]
  - Coma [Unknown]
